FAERS Safety Report 19041095 (Version 1)
Quarter: 2021Q1

REPORT INFORMATION
  Report Type: Spontaneous
  Country: US (occurrence: US)
  Receive Date: 20210323
  Receipt Date: 20210323
  Transmission Date: 20210420
  Serious: No
  Sender: FDA-Public Use
  Company Number: US-SA-2021SA094024

PATIENT
  Age: 4 Year
  Sex: Male

DRUGS (2)
  1. LUMIZYME [Suspect]
     Active Substance: ALGLUCOSIDASE ALFA
     Dosage: 40 MG/KG, QOW
  2. LUMIZYME [Suspect]
     Active Substance: ALGLUCOSIDASE ALFA
     Dosage: 40 MG/KG, QW

REACTIONS (4)
  - Aspartate aminotransferase increased [Unknown]
  - Alanine aminotransferase increased [Unknown]
  - Liver function test increased [Unknown]
  - Blood creatine phosphokinase increased [Unknown]
